FAERS Safety Report 8047989 (Version 2)
Quarter: 2013Q2

REPORT INFORMATION
  Report Type: Spontaneous
  Country: MX (occurrence: MX)
  Receive Date: 20110721
  Receipt Date: 20130403
  Transmission Date: 20140414
  Serious: Yes (Hospitalization)
  Sender: FDA-Public Use
  Company Number: PHHY2011MX61203

PATIENT
  Age: 64 Year
  Sex: Female

DRUGS (3)
  1. CO-DIOVAN [Suspect]
     Indication: HYPERTENSION
     Dosage: 1 TABLET (160 MG VALS/ 12.5 MG HCT), DAILY
     Route: 048
     Dates: start: 20100325, end: 20130318
  2. EUTIROX [Concomitant]
     Indication: THYROID DISORDER
     Dosage: 1 DF, PER DAY
     Dates: start: 198401
  3. ASPIRIN PROTECT [Concomitant]
     Indication: COAGULOPATHY
     Dosage: 1 DF, DAILY

REACTIONS (3)
  - Arthropathy [Not Recovered/Not Resolved]
  - Arthralgia [Not Recovered/Not Resolved]
  - Blood pressure increased [Recovered/Resolved]
